FAERS Safety Report 24133587 (Version 1)
Quarter: 2024Q3

REPORT INFORMATION
  Report Type: Spontaneous
  Country: US (occurrence: US)
  Receive Date: 20240724
  Receipt Date: 20240724
  Transmission Date: 20241016
  Serious: Yes (Hospitalization, Other)
  Sender: DR REDDYS
  Company Number: US-DRL-USA-LIT/USA/24/0010718

PATIENT
  Age: 69 Year
  Sex: Female

DRUGS (1)
  1. SEVELAMER [Suspect]
     Active Substance: SEVELAMER
     Indication: End stage renal disease
     Dosage: 9,600 MG/D

REACTIONS (3)
  - Gastric ulcer [Unknown]
  - Duodenitis [Unknown]
  - Proctitis ulcerative [Unknown]
